FAERS Safety Report 5288020-9 (Version None)
Quarter: 2007Q2

REPORT INFORMATION
  Report Type: 
  Country: None (occurrence: None)
  Receive Date: 20070405
  Receipt Date: 20070322
  Transmission Date: 20071010
  Serious: Yes (Other)
  Sender: FDA-Public Use
  Company Number: PHFR2007GB01122

PATIENT
  Age: 61 Year

DRUGS (1)
  1. CLOZAPINE [Suspect]
     Route: 065

REACTIONS (1)
  - OVERWEIGHT [None]
